FAERS Safety Report 6805435-5 (Version None)
Quarter: 2010Q2

REPORT INFORMATION
  Report Type: 
  Country: None (occurrence: None)
  Receive Date: 20100628
  Receipt Date: 20071123
  Transmission Date: 20101027
  Serious: Yes (Other)
  Sender: FDA-Public Use
  Company Number: US-PFIZER INC-2007080929

PATIENT
  Sex: Female
  Weight: 54.4 kg

DRUGS (3)
  1. GEODON [Suspect]
     Indication: BIPOLAR I DISORDER
     Dosage: 60-80 MG
     Dates: start: 20060731, end: 20070706
  2. LEXAPRO [Concomitant]
     Dates: start: 20060508
  3. LAMICTAL [Concomitant]
     Dates: start: 20060217

REACTIONS (2)
  - DYSTONIA [None]
  - TARDIVE DYSKINESIA [None]
